FAERS Safety Report 7879495-7 (Version None)
Quarter: 2011Q4

REPORT INFORMATION
  Report Type: 
  Country: None (occurrence: None)
  Receive Date: 20111101
  Receipt Date: 20110314
  Transmission Date: 20120403
  Serious: No
  Sender: FDA-Public Use
  Company Number: US-ABBOTT-11P-163-0710437-00

PATIENT
  Sex: Female
  Weight: 90.8 kg

DRUGS (1)
  1. BIAXIN [Suspect]
     Indication: BRONCHITIS
     Dates: start: 20110226, end: 20110307

REACTIONS (2)
  - TOOTH DISORDER [None]
  - TOOTH DISCOLOURATION [None]
